FAERS Safety Report 24578806 (Version 2)
Quarter: 2024Q4

REPORT INFORMATION
  Report Type: Spontaneous
  Country: DE (occurrence: DE)
  Receive Date: 20241105
  Receipt Date: 20241114
  Transmission Date: 20250115
  Serious: Yes (Death, Life-Threatening, Hospitalization, Other)
  Sender: SERVIER
  Company Number: None

PATIENT

DRUGS (2)
  1. ONCASPAR [Suspect]
     Active Substance: PEGASPARGASE
     Indication: Acute lymphocytic leukaemia
     Dosage: 2010 IU
     Route: 042
     Dates: start: 20230810, end: 20230810
  2. ONCASPAR [Suspect]
     Active Substance: PEGASPARGASE
     Dosage: 2010 IU
     Route: 042
     Dates: start: 20230827, end: 20230827

REACTIONS (6)
  - Oedematous pancreatitis [Fatal]
  - Multiple organ dysfunction syndrome [Fatal]
  - Hypovolaemic shock [Fatal]
  - Pancreatitis acute [Fatal]
  - Abdominal pain upper [Unknown]
  - Hypertriglyceridaemia [Unknown]

NARRATIVE: CASE EVENT DATE: 20230905
